FAERS Safety Report 9631021 (Version 1)
Quarter: 2013Q4

REPORT INFORMATION
  Report Type: Spontaneous
  Country: CA (occurrence: None)
  Receive Date: 20131015
  Receipt Date: 20131015
  Transmission Date: 20140711
  Serious: Yes (Other)
  Sender: FDA-Public Use
  Company Number: FK201304486

PATIENT
  Age: 15 Year
  Sex: Female

DRUGS (3)
  1. DOXYCYCLINE FOR INJECTION (MANUFACTURER UNKNOWN) (DOXYCYCLINE HYCLATE) (DOXYCYCLINE HYCLATE) [Suspect]
     Indication: ACNE
     Dosage: 1 IN 1 D, UNKNOWN
  2. RETINOIDS FOR TREATMENT OF ACNE [Concomitant]
  3. ERYTHROMYCIN [Concomitant]

REACTIONS (9)
  - Local swelling [None]
  - Local swelling [None]
  - Swelling face [None]
  - Myalgia [None]
  - Mood altered [None]
  - Fatigue [None]
  - Headache [None]
  - Rash [None]
  - Rash [None]
